FAERS Safety Report 16636915 (Version 1)
Quarter: 2019Q3

REPORT INFORMATION
  Report Type: Spontaneous
  Country: FR (occurrence: FR)
  Receive Date: 20190726
  Receipt Date: 20190726
  Transmission Date: 20191004
  Serious: Yes (Other)
  Sender: FDA-Public Use
  Company Number: FR-PFIZER INC-2019312532

PATIENT
  Age: 43 Year
  Sex: Female
  Weight: 54 kg

DRUGS (4)
  1. ANDROCUR [Suspect]
     Active Substance: CYPROTERONE ACETATE
     Indication: AMENORRHOEA
     Dosage: UNK
     Route: 048
  2. OESTRODOSE [Concomitant]
     Active Substance: ESTRADIOL
     Indication: AMENORRHOEA
     Dosage: UNK
  3. MINIDRIL [Suspect]
     Active Substance: ETHINYL ESTRADIOL\LEVONORGESTREL
     Dosage: UNK
     Route: 048
  4. SURGESTONE [Suspect]
     Active Substance: PROMEGESTONE
     Indication: ENDOMETRIOSIS
     Dosage: 500 MG, 1X/DAY
     Route: 048
     Dates: start: 20150101, end: 20190628

REACTIONS (1)
  - Meningioma [Not Recovered/Not Resolved]

NARRATIVE: CASE EVENT DATE: 201901
